FAERS Safety Report 17138399 (Version 2)
Quarter: 2020Q1

REPORT INFORMATION
  Report Type: Spontaneous
  Country: US (occurrence: US)
  Receive Date: 20191211
  Receipt Date: 20200116
  Transmission Date: 20200409
  Serious: Yes (Hospitalization)
  Sender: FDA-Public Use
  Company Number: US-BIOGEN-2019BI00814894

PATIENT
  Age: 1 Year
  Sex: Male

DRUGS (1)
  1. SPINRAZA [Suspect]
     Active Substance: NUSINERSEN
     Indication: SPINAL MUSCULAR ATROPHY
     Route: 037
     Dates: start: 20180911

REACTIONS (1)
  - Respiratory syncytial virus infection [Recovered/Resolved]

NARRATIVE: CASE EVENT DATE: 20191121
